FAERS Safety Report 4386979-5 (Version None)
Quarter: 2004Q2

REPORT INFORMATION
  Report Type: 
  Country: None (occurrence: None)
  Receive Date: 20040623
  Receipt Date: 20040610
  Transmission Date: 20050107
  Serious: Yes (Hospitalization)
  Sender: FDA-Public Use
  Company Number: 2004039684

PATIENT
  Sex: Male
  Weight: 3 kg

DRUGS (2)
  1. SERTRALINE (SERTRALINE) [Suspect]
     Indication: ILL-DEFINED DISORDER
  2. LORAZEPAM [Suspect]
     Indication: ILL-DEFINED DISORDER

REACTIONS (6)
  - DRUG EXPOSURE DURING PREGNANCY [None]
  - HYPERTONIA NEONATAL [None]
  - HYPOPNOEA [None]
  - NEONATAL DISORDER [None]
  - NEONATAL RESPIRATORY ACIDOSIS [None]
  - PREMATURE BABY [None]
